FAERS Safety Report 9740212 (Version 3)
Quarter: 2014Q1

REPORT INFORMATION
  Report Type: Spontaneous
  Country: US (occurrence: US)
  Receive Date: 20131209
  Receipt Date: 20140103
  Transmission Date: 20141002
  Serious: No
  Sender: FDA-Public Use
  Company Number: US-PFIZER INC-2013348576

PATIENT
  Age: 53 Year
  Sex: Female

DRUGS (5)
  1. SUTENT [Suspect]
     Indication: GASTRIC CANCER
     Dosage: 37.5 MG, DAILY (12.5 MG, 3 DF PO)
     Route: 048
     Dates: start: 20130926, end: 20131207
  2. SUTENT [Suspect]
     Dosage: 25 MG, DAILY
     Dates: start: 20131218
  3. HYDROCHLOROTHIAZIDE [Concomitant]
     Dosage: UNK
  4. PANTOPRAZOLE SODIUM [Concomitant]
     Dosage: UNK
  5. ZOFRAN [Concomitant]
     Dosage: UNK

REACTIONS (4)
  - Stomatitis [Not Recovered/Not Resolved]
  - Musculoskeletal pain [Unknown]
  - Chest pain [Unknown]
  - Plantar erythema [Not Recovered/Not Resolved]
